FAERS Safety Report 9203962 (Version 1)
Quarter: 2013Q1

REPORT INFORMATION
  Report Type: Spontaneous
  Country: US (occurrence: None)
  Receive Date: 20120709
  Receipt Date: 20120709
  Transmission Date: 20140127
  Serious: No
  Sender: FDA-Public Use
  Company Number: PHEH2011US02136

PATIENT
  Age: 72 Year
  Sex: Male
  Weight: 81.6 kg

DRUGS (9)
  1. GLEEVEC (IMATINIB) UNKNOWN [Suspect]
     Indication: SOFT TISSUE CANCER
     Route: 048
     Dates: start: 2008
  2. HYDROCHLOROTHIAZIDE (HYDROCHLOROTHIAZIDE) [Concomitant]
  3. SINGULAIR [Concomitant]
  4. LEVOTHYROXINE (LEVOTHYROXINE) [Concomitant]
  5. ADVAIR (FLUTICASONE PROPIONATE, SALMETEROL XINAFOATE) [Concomitant]
  6. DOCUSATE SODIUM (DOCUSATE SODIUM) CAPSULE [Concomitant]
  7. NASONEX (MOMETASONE FUROATE) [Concomitant]
  8. COMBIVENT (IPRATROPIUM BROMIDE, SALBUTAMOL SULFATE) [Concomitant]
  9. CLARITIN (LORATADINE) [Concomitant]

REACTIONS (3)
  - Neoplasm progression [None]
  - Drug ineffective [None]
  - Neoplasm malignant [None]
